FAERS Safety Report 25077300 (Version 2)
Quarter: 2025Q2

REPORT INFORMATION
  Report Type: Report from Study
  Country: CO (occurrence: CO)
  Receive Date: 20250314
  Receipt Date: 20250404
  Transmission Date: 20250717
  Serious: Yes (Hospitalization, Other)
  Sender: UCB
  Company Number: CO-UCBSA-2025014316

PATIENT
  Age: 31 Year
  Sex: Male

DRUGS (4)
  1. BRIVARACETAM [Suspect]
     Active Substance: BRIVARACETAM
     Indication: Epilepsy
     Dosage: 100 MILLIGRAM, 2X/DAY (BID)
     Route: 048
     Dates: start: 20230712
  2. LAMOTRIGINE [Concomitant]
     Active Substance: LAMOTRIGINE
     Indication: Product used for unknown indication
  3. SERTRALINE [Concomitant]
     Active Substance: SERTRALINE HYDROCHLORIDE
     Indication: Product used for unknown indication
     Dosage: 100 MILLIGRAM, ONCE DAILY (QD)
  4. BRIVARACETAM [Concomitant]
     Active Substance: BRIVARACETAM
     Indication: Product used for unknown indication
     Dates: start: 20250225, end: 20250305

REACTIONS (6)
  - Aggression [Recovered/Resolved]
  - Injury [Not Recovered/Not Resolved]
  - Limb reconstructive surgery [Not Recovered/Not Resolved]
  - Seizure [Recovered/Resolved]
  - Face injury [Not Recovered/Not Resolved]
  - Surgery [Not Recovered/Not Resolved]

NARRATIVE: CASE EVENT DATE: 20250126
